FAERS Safety Report 17787720 (Version 1)
Quarter: 2020Q2

REPORT INFORMATION
  Report Type: Spontaneous
  Country: US (occurrence: US)
  Receive Date: 20200515
  Receipt Date: 20200515
  Transmission Date: 20200714
  Serious: Yes (Other)
  Sender: FDA-Public Use
  Company Number: US-BRISTOL-MYERS SQUIBB COMPANY-BMS-2020-038339

PATIENT
  Sex: Male
  Weight: 89.81 kg

DRUGS (1)
  1. BARACLUDE [Suspect]
     Active Substance: ENTECAVIR
     Indication: HEPATITIS
     Dosage: 1 MILLIGRAM, QD
     Route: 048
     Dates: start: 2017

REACTIONS (1)
  - Hepatic cirrhosis [Unknown]
